FAERS Safety Report 9353538 (Version 1)
Quarter: 2013Q2

REPORT INFORMATION
  Report Type: Spontaneous
  Country: US (occurrence: None)
  Receive Date: 20130617
  Receipt Date: 20130617
  Transmission Date: 20140414
  Serious: No
  Sender: FDA-Public Use
  Company Number: None

PATIENT
  Sex: Male

DRUGS (1)
  1. SUTENT [Suspect]
     Route: 048
     Dates: start: 20130522

REACTIONS (4)
  - Glossodynia [None]
  - Oral pain [None]
  - Blood pressure increased [None]
  - Skin irritation [None]
